FAERS Safety Report 10397083 (Version 3)
Quarter: 2014Q4

REPORT INFORMATION
  Report Type: Spontaneous
  Country: US (occurrence: US)
  Receive Date: 20140820
  Receipt Date: 20141209
  Transmission Date: 20150528
  Serious: Yes (Hospitalization)
  Sender: FDA-Public Use
  Company Number: US-B.I. PHARMACEUTICALS,INC./RIDGEFIELD-2014-BI-38182BP

PATIENT
  Age: 67 Year
  Sex: Male

DRUGS (1)
  1. PRADAXA [Suspect]
     Active Substance: DABIGATRAN ETEXILATE MESYLATE
     Indication: ATRIAL FIBRILLATION
     Dosage: 300 MG
     Route: 048
     Dates: start: 201203, end: 20120607

REACTIONS (5)
  - Telangiectasia [Unknown]
  - Small intestinal haemorrhage [Unknown]
  - Clostridium difficile colitis [Unknown]
  - Anaemia [Unknown]
  - Ulcer [Unknown]

NARRATIVE: CASE EVENT DATE: 201206
